FAERS Safety Report 7682901-4 (Version None)
Quarter: 2011Q3

REPORT INFORMATION
  Report Type: 
  Country: None (occurrence: None)
  Receive Date: 20110815
  Receipt Date: 20110804
  Transmission Date: 20111222
  Serious: Yes (Hospitalization)
  Sender: FDA-Public Use
  Company Number: PHHO2011US08178

PATIENT
  Sex: Male
  Weight: 85.6 kg

DRUGS (3)
  1. CERTICAN [Suspect]
     Indication: RENAL TRANSPLANT
     Dosage: 0.75 MG, BID
     Route: 048
     Dates: start: 20110504
  2. THYMOGLOBULIN [Concomitant]
     Indication: RENAL TRANSPLANT
     Dosage: 1.5 MG/KG, QD
     Dates: start: 20110504
  3. PROGRAF [Concomitant]
     Dosage: UNK MG, UNK
     Dates: start: 20110505, end: 20110513

REACTIONS (2)
  - RENAL TUBULAR NECROSIS [None]
  - URETHRAL OBSTRUCTION [None]
